FAERS Safety Report 8693555 (Version 2)
Quarter: 2013Q1

REPORT INFORMATION
  Report Type: Spontaneous
  Country: US (occurrence: US)
  Receive Date: 20120731
  Receipt Date: 20130213
  Transmission Date: 20140127
  Serious: Yes (Hospitalization, Other)
  Sender: FDA-Public Use
  Company Number: US-AMGEN-USASP2012046270

PATIENT
  Age: 80 Year
  Sex: Female

DRUGS (2)
  1. ENBREL [Suspect]
     Indication: PSORIATIC ARTHROPATHY
     Dosage: 50 MG, UNK
     Dates: start: 20050501
  2. ENBREL [Suspect]
     Indication: PSORIASIS

REACTIONS (4)
  - Large intestinal obstruction [Recovered/Resolved]
  - Psoriatic arthropathy [Unknown]
  - Emotional distress [Unknown]
  - Psoriasis [Unknown]
